FAERS Safety Report 10270159 (Version 2)
Quarter: 2014Q3

REPORT INFORMATION
  Report Type: Spontaneous
  Country: US (occurrence: US)
  Receive Date: 20140701
  Receipt Date: 20140707
  Transmission Date: 20150326
  Serious: No
  Sender: FDA-Public Use
  Company Number: US-009507513-1406USA011835

PATIENT

DRUGS (2)
  1. NEXPLANON [Suspect]
     Active Substance: ETONOGESTREL
     Dosage: ONCE EVERY 3 YEARS
     Route: 059
     Dates: start: 20140619
  2. NEXPLANON [Suspect]
     Active Substance: ETONOGESTREL
     Dosage: ONCE EVERY 3 YEARS
     Route: 059
     Dates: start: 20140619, end: 20140619

REACTIONS (3)
  - Device difficult to use [Recovered/Resolved]
  - Product quality issue [Unknown]
  - No adverse event [Unknown]

NARRATIVE: CASE EVENT DATE: 20140619
